FAERS Safety Report 9113941 (Version 1)
Quarter: 2013Q1

REPORT INFORMATION
  Report Type: Report from Study
  Country: US (occurrence: US)
  Receive Date: 20130129
  Receipt Date: 20130129
  Transmission Date: 20140127
  Serious: No
  Sender: FDA-Public Use
  Company Number: US-ABBOTT-12P-163-0939460-00

PATIENT
  Age: 58 Year
  Sex: Female

DRUGS (6)
  1. HUMIRA 40 MG/ 0.8 ML PRE-FILLED SYRINGE [Suspect]
     Indication: PSORIATIC ARTHROPATHY
     Dosage: EVERY OTHER WEEK
     Route: 058
     Dates: start: 20120323, end: 20120419
  2. HUMIRA 40 MG/ 0.8 ML PRE-FILLED SYRINGE [Suspect]
     Dosage: WEEKLY
     Route: 058
     Dates: start: 20120420
  3. NORMAL SALINE WITH 10 MCG KCL [Concomitant]
     Indication: FIBROMYALGIA
     Dosage: WEEKLY
     Route: 042
  4. GAMMAGARD [Concomitant]
     Indication: HYPOGAMMAGLOBULINAEMIA
     Dosage: WEEKLY
     Route: 042
  5. METHOTREXATE [Concomitant]
     Indication: PSORIATIC ARTHROPATHY
     Dosage: WEEKLY
  6. OTHER UNKNOWN MEDICATIONS [Concomitant]
     Indication: PRODUCT USED FOR UNKNOWN INDICATION

REACTIONS (7)
  - Pyrexia [Not Recovered/Not Resolved]
  - Pyrexia [Unknown]
  - Feeling hot [Not Recovered/Not Resolved]
  - Erythema [Not Recovered/Not Resolved]
  - Drug ineffective [Not Recovered/Not Resolved]
  - Arthralgia [Not Recovered/Not Resolved]
  - Pain in extremity [Not Recovered/Not Resolved]
